FAERS Safety Report 7496357-8 (Version None)
Quarter: 2011Q2

REPORT INFORMATION
  Report Type: 
  Country: None (occurrence: None)
  Receive Date: 20110520
  Receipt Date: 20110520
  Transmission Date: 20111010
  Serious: Yes (Other)
  Sender: FDA-Public Use
  Company Number: None

PATIENT
  Sex: Female
  Weight: 81.6475 kg

DRUGS (11)
  1. TAXOTERE [Concomitant]
  2. AVASTIN [Concomitant]
  3. CISPLATIN [Concomitant]
  4. TAXOL [Concomitant]
  5. TARCEVA [Concomitant]
  6. GEMZAR [Concomitant]
  7. ZOLEDRONIC ACID [Suspect]
     Indication: METASTASES TO BONE
     Dosage: 4 MG Q 21 DAYS IV
     Route: 042
     Dates: start: 20081111, end: 20110519
  8. CARBOPLATIN [Concomitant]
  9. ALIMTA [Concomitant]
  10. BEVACIZUMAB [Concomitant]
  11. ZOMETA [Concomitant]

REACTIONS (1)
  - OSTEONECROSIS OF JAW [None]
